FAERS Safety Report 10817369 (Version 2)
Quarter: 2015Q2

REPORT INFORMATION
  Report Type: Spontaneous
  Country: KZ (occurrence: None)
  Receive Date: 20150213
  Receipt Date: 20150421
  Transmission Date: 20150821
  Serious: Yes (Hospitalization, Other)
  Sender: FDA-Public Use
  Company Number: 2015-10644

PATIENT
  Age: 50 Year
  Sex: Male

DRUGS (1)
  1. EYLEA [Suspect]
     Active Substance: AFLIBERCEPT
     Indication: NEOVASCULAR AGE-RELATED MACULAR DEGENERATION
     Route: 031
     Dates: start: 201411

REACTIONS (5)
  - Hypothermia [None]
  - Treatment noncompliance [None]
  - Iridocyclitis [None]
  - Vitreous opacities [None]
  - Visual acuity reduced [None]

NARRATIVE: CASE EVENT DATE: 20141213
